FAERS Safety Report 8296640-2 (Version None)
Quarter: 2012Q2

REPORT INFORMATION
  Report Type: 
  Country: None (occurrence: None)
  Receive Date: 20120418
  Receipt Date: 20120418
  Transmission Date: 20120825
  Serious: No
  Sender: FDA-Public Use
  Company Number: None

PATIENT
  Sex: Female
  Weight: 88.904 kg

DRUGS (1)
  1. LEVOFLOXACIN [Suspect]
     Indication: SINUSITIS
     Dosage: 500MG
     Route: 048
     Dates: start: 20120404, end: 20120414

REACTIONS (5)
  - ORAL HERPES [None]
  - TENDON PAIN [None]
  - CONSTIPATION [None]
  - HERPES VIRUS INFECTION [None]
  - PAIN IN EXTREMITY [None]
